FAERS Safety Report 8896246 (Version 1)
Quarter: 2012Q4

REPORT INFORMATION
  Report Type: Spontaneous
  Country: US (occurrence: None)
  Receive Date: 20121106
  Receipt Date: 20121106
  Transmission Date: 20130627
  Serious: Yes (Other)
  Sender: FDA-Public Use
  Company Number: None

PATIENT
  Age: 32 Year
  Sex: Female
  Weight: 63.5 kg

DRUGS (2)
  1. MIRENA IUD [Suspect]
     Dates: start: 20040501, end: 20070901
  2. MIRENA IUD [Suspect]
     Dates: start: 20080801, end: 20121031

REACTIONS (7)
  - Menorrhagia [None]
  - Menstruation irregular [None]
  - Amenorrhoea [None]
  - Depression [None]
  - Fatigue [None]
  - Gastrointestinal disorder [None]
  - Weight decreased [None]
